FAERS Safety Report 10190556 (Version 3)
Quarter: 2014Q2

REPORT INFORMATION
  Report Type: Spontaneous
  Country: CA (occurrence: CA)
  Receive Date: 20140523
  Receipt Date: 20140618
  Transmission Date: 20141212
  Serious: Yes (Other)
  Sender: FDA-Public Use
  Company Number: PHHY2014CA034676

PATIENT
  Sex: Male

DRUGS (1)
  1. RHO-NITRO PUMPSPRAY [Suspect]
     Indication: ANGINA PECTORIS
     Dosage: 0.4 MG, PRN

REACTIONS (7)
  - Cardiac disorder [Not Recovered/Not Resolved]
  - Chest pain [Not Recovered/Not Resolved]
  - Fatigue [Not Recovered/Not Resolved]
  - Insomnia [Not Recovered/Not Resolved]
  - Pollakiuria [Not Recovered/Not Resolved]
  - Expired product administered [Unknown]
  - Cardiac valve disease [None]
